FAERS Safety Report 23526995 (Version 1)
Quarter: 2024Q1

REPORT INFORMATION
  Report Type: Report from Study
  Country: US (occurrence: None)
  Receive Date: 20240215
  Receipt Date: 20240215
  Transmission Date: 20240410
  Serious: Yes (Other)
  Sender: FDA-Public Use
  Company Number: 2024A036511

PATIENT
  Age: 728 Month
  Sex: Male

DRUGS (1)
  1. FASENRA [Suspect]
     Active Substance: BENRALIZUMAB
     Indication: Asthma
     Dosage: 30 MG/ML: WE-CT I PEN UNDER THE SKIN (SUBCUTANEOUS INJECTION) ONCE EVERY B WEEKS 30MG/ML EVERY E...
     Route: 058
     Dates: start: 20201001

REACTIONS (4)
  - Cataract [Unknown]
  - Asthma [Unknown]
  - Dyspnoea [Unknown]
  - Drug ineffective [Unknown]

NARRATIVE: CASE EVENT DATE: 20240101
